FAERS Safety Report 15688590 (Version 2)
Quarter: 2019Q2

REPORT INFORMATION
  Report Type: Spontaneous
  Country: JP (occurrence: JP)
  Receive Date: 20181205
  Receipt Date: 20190529
  Transmission Date: 20190711
  Serious: Yes (Hospitalization)
  Sender: FDA-Public Use
  Company Number: JP-SUN PHARMACEUTICAL INDUSTRIES LTD-2018R1-192429

PATIENT
  Age: 30 Year
  Sex: Female

DRUGS (2)
  1. METHYLDOPA. [Suspect]
     Active Substance: METHYLDOPA
     Indication: HYPERTENSION
     Dosage: UNK
     Route: 048
  2. APRESOLINE HYDROCHLORIDE [Suspect]
     Active Substance: HYDRALAZINE HYDROCHLORIDE
     Indication: HYPERTENSION
     Dosage: UNK
     Route: 048

REACTIONS (9)
  - Exposure during pregnancy [Unknown]
  - Primary hyperaldosteronism [Unknown]
  - Genital haemorrhage [Unknown]
  - Premature delivery [Unknown]
  - Low birth weight baby [Unknown]
  - Renal disorder in pregnancy [Unknown]
  - Gestational hypertension [Unknown]
  - Foetal growth restriction [Unknown]
  - Subchorionic haematoma [Unknown]
